FAERS Safety Report 6371862-6 (Version None)
Quarter: 2009Q3

REPORT INFORMATION
  Report Type: 
  Country: None (occurrence: None)
  Receive Date: 20090923
  Receipt Date: 20090915
  Transmission Date: 20100115
  Serious: Yes (Life-Threatening)
  Sender: FDA-Public Use
  Company Number: JP-ASTRAZENECA-2009SE09346

PATIENT
  Age: 40 Year
  Sex: Female
  Weight: 40 kg

DRUGS (10)
  1. ANAPEINE [Suspect]
     Indication: NERVE BLOCK
     Route: 053
     Dates: start: 20090819, end: 20090819
  2. SEISHOKU [Concomitant]
     Indication: NERVE BLOCK
     Route: 053
     Dates: start: 20090819, end: 20090819
  3. DIPRIVAN [Concomitant]
     Indication: INDUCTION AND MAINTENANCE OF ANAESTHESIA
     Route: 042
     Dates: start: 20090819, end: 20090819
  4. FENTANYL [Concomitant]
     Indication: INDUCTION AND MAINTENANCE OF ANAESTHESIA
     Route: 042
     Dates: start: 20090819, end: 20090820
  5. ULTIVA [Concomitant]
     Indication: INDUCTION OF ANAESTHESIA
     Route: 042
     Dates: start: 20090819, end: 20090819
  6. ROCURONIUM BROMIDE [Concomitant]
     Indication: INDUCTION OF ANAESTHESIA
     Route: 042
     Dates: start: 20090819, end: 20090819
  7. ATROPINE SULFATE [Concomitant]
     Indication: ANAESTHESIA REVERSAL
     Route: 042
     Dates: start: 20090819, end: 20090819
  8. NEOSTIGMINE METHYLSULFATE [Concomitant]
     Indication: ANAESTHESIA REVERSAL
     Route: 042
     Dates: start: 20090819, end: 20090819
  9. CEZ [Concomitant]
     Indication: ANTIBIOTIC PROPHYLAXIS
     Route: 042
     Dates: start: 20090819, end: 20090819
  10. TRANSAMIN [Concomitant]
     Indication: HAEMOSTASIS
     Route: 042
     Dates: start: 20090819, end: 20090819

REACTIONS (2)
  - ALTERED STATE OF CONSCIOUSNESS [None]
  - CLONIC CONVULSION [None]
